FAERS Safety Report 7264836-4 (Version None)
Quarter: 2011Q1

REPORT INFORMATION
  Report Type: 
  Country: None (occurrence: None)
  Receive Date: 20110131
  Receipt Date: 20100923
  Transmission Date: 20110831
  Serious: Yes (Hospitalization, Other)
  Sender: FDA-Public Use
  Company Number: US-BAYER-200938824NA

PATIENT
  Sex: Female
  Weight: 86.364 kg

DRUGS (11)
  1. YAZ [Suspect]
  2. YAZ [Suspect]
     Indication: PREMENSTRUAL SYNDROME
  3. CIPROFLOXACIN [Concomitant]
     Route: 065
     Dates: start: 20090101
  4. YAZ [Suspect]
     Indication: PAIN
     Dosage: PHARMACY RECORDS: 08-JUL-2009 TO 27-OCT-2009
     Route: 048
     Dates: start: 20080906, end: 20091027
  5. ASCORBIC ACID [Concomitant]
     Route: 065
     Dates: start: 20000101, end: 20100101
  6. IBUPROFEN [Concomitant]
     Route: 065
     Dates: start: 20000101, end: 20100101
  7. CENTRUM [Concomitant]
     Route: 065
  8. OXYCODONE [Concomitant]
     Route: 065
     Dates: start: 20090101
  9. METRONIDAZOLE [Concomitant]
     Route: 067
     Dates: start: 20090101
  10. FLUCONAZOLE [Concomitant]
     Route: 065
     Dates: start: 20090101
  11. PRILOSEC [Concomitant]
     Route: 065

REACTIONS (12)
  - DYSPEPSIA [None]
  - COUGH [None]
  - INCREASED UPPER AIRWAY SECRETION [None]
  - PHARYNGEAL ERYTHEMA [None]
  - LYMPHADENITIS [None]
  - VOMITING [None]
  - ABDOMINAL DISCOMFORT [None]
  - DYSPNOEA [None]
  - CHOLECYSTITIS CHRONIC [None]
  - CHOLELITHIASIS [None]
  - NAUSEA [None]
  - ABDOMINAL PAIN UPPER [None]
